FAERS Safety Report 15810406 (Version 1)
Quarter: 2019Q1

REPORT INFORMATION
  Report Type: Spontaneous
  Country: US (occurrence: US)
  Receive Date: 20190111
  Receipt Date: 20190111
  Transmission Date: 20190417
  Serious: Yes (Other)
  Sender: FDA-Public Use
  Company Number: US-PFIZER INC-2019014752

PATIENT
  Sex: Female

DRUGS (1)
  1. TERRAMICINA (OXYTETRACYCLINE HCL) [Suspect]
     Active Substance: OXYTETRACYCLINE HYDROCHLORIDE
     Indication: DIARRHOEA
     Dosage: UNK

REACTIONS (3)
  - Product use in unapproved indication [Unknown]
  - Paralysis [Unknown]
  - Suspected counterfeit product [Unknown]
